FAERS Safety Report 10911859 (Version 1)
Quarter: 2015Q1

REPORT INFORMATION
  Report Type: Spontaneous
  Country: US (occurrence: None)
  Receive Date: 20150310
  Receipt Date: 20150310
  Transmission Date: 20150721
  Serious: Yes (Disabling)
  Sender: FDA-Public Use
  Company Number: None

PATIENT
  Age: 72 Year
  Sex: Male
  Weight: 75.3 kg

DRUGS (3)
  1. ANASTROZOLE. [Suspect]
     Active Substance: ANASTROZOLE
     Indication: OESTRADIOL INCREASED
     Dosage: 1/2 ONCE DAILY
     Route: 048
     Dates: start: 20150218, end: 20150304
  2. HCG [Concomitant]
     Active Substance: GONADOTROPHIN, CHORIONIC
  3. VARIOUS VITAMINS AND MINERALS [Concomitant]

REACTIONS (1)
  - Hypertension [None]

NARRATIVE: CASE EVENT DATE: 20150301
